FAERS Safety Report 8942409 (Version 1)
Quarter: 2012Q4

REPORT INFORMATION
  Report Type: 
  Country: US (occurrence: US)
  Receive Date: 20121204
  Receipt Date: 20121204
  Transmission Date: 20130627
  Serious: Yes (Death)
  Sender: FDA-Public Use
  Company Number: US-SANOFI-AVENTIS-2012SA086658

PATIENT
  Age: 76 Year
  Sex: Female

DRUGS (1)
  1. RILUTEK [Suspect]
     Indication: ALS
     Route: 048
     Dates: start: 201111, end: 20121018

REACTIONS (1)
  - Death [Fatal]
